FAERS Safety Report 7150674-X (Version None)
Quarter: 2010Q4

REPORT INFORMATION
  Report Type: 
  Country: None (occurrence: None)
  Receive Date: 20101210
  Receipt Date: 20101201
  Transmission Date: 20110411
  Serious: Yes (Death)
  Sender: FDA-Public Use
  Company Number: DE-SANOFI-AVENTIS-2010SA073144

PATIENT
  Age: 66 Year

DRUGS (6)
  1. DOCETAXEL [Suspect]
     Indication: LIP AND/OR ORAL CAVITY CANCER
     Route: 041
     Dates: start: 20100531, end: 20100531
  2. DOCETAXEL [Suspect]
     Route: 041
     Dates: start: 20100909, end: 20100909
  3. CETUXIMAB [Suspect]
     Indication: LIP AND/OR ORAL CAVITY CANCER
     Route: 041
     Dates: start: 20100531, end: 20100531
  4. CETUXIMAB [Suspect]
     Route: 041
     Dates: start: 20100909, end: 20100909
  5. CISPLATIN [Suspect]
     Route: 041
     Dates: start: 20100531, end: 20100531
  6. CISPLATIN [Suspect]
     Route: 041
     Dates: start: 20100909, end: 20100909

REACTIONS (1)
  - PNEUMONIA ASPIRATION [None]
